FAERS Safety Report 8574046-6 (Version None)
Quarter: 2012Q3

REPORT INFORMATION
  Report Type: 
  Country: None (occurrence: None)
  Receive Date: 20120806
  Receipt Date: 20120727
  Transmission Date: 20120928
  Serious: Yes (Other)
  Sender: FDA-Public Use
  Company Number: US-ASTRAZENECA-2012SE53743

PATIENT
  Age: 55 Year
  Sex: Male

DRUGS (1)
  1. VANDETANIB [Suspect]
     Route: 048

REACTIONS (2)
  - NEOPLASM MALIGNANT [None]
  - SPEECH DISORDER [None]
